FAERS Safety Report 8051568 (Version 3)
Quarter: 2013Q3

REPORT INFORMATION
  Report Type: Spontaneous
  Country: US (occurrence: US)
  Receive Date: 20110725
  Receipt Date: 20130802
  Transmission Date: 20140515
  Serious: No
  Sender: FDA-Public Use
  Company Number: US-BRISTOL-MYERS SQUIBB COMPANY-15793409

PATIENT
  Sex: Male

DRUGS (1)
  1. COUMADIN TABS 5 MG [Suspect]
     Dosage: DOSAGE:3 DAYS A WEEK?2.5MG 4 DAYS WEEK
     Route: 048

REACTIONS (2)
  - International normalised ratio decreased [Unknown]
  - International normalised ratio increased [Unknown]
